FAERS Safety Report 5040953-4 (Version None)
Quarter: 2006Q2

REPORT INFORMATION
  Report Type: 
  Country: None (occurrence: None)
  Receive Date: 20060629
  Receipt Date: 20060629
  Transmission Date: 20061013
  Serious: No
  Sender: FDA-Public Use
  Company Number: None

PATIENT
  Sex: Male
  Weight: 103 kg

DRUGS (5)
  1. CYCLOPHOSPHAMIDE [Suspect]
     Dosage: 1620 MG
     Dates: start: 20060623
  2. DOXORUBICIN HYDROCHLORIDE [Suspect]
     Dosage: 108 MG
     Dates: start: 20060623
  3. PREDNISONE TAB [Suspect]
     Dosage: 100 MG
     Dates: start: 20060623
  4. RITUXIMAB (MOAB C2B8 AMTO CD20, CHIMERIC) [Suspect]
     Dosage: 800 MG
     Dates: start: 20060623
  5. VINCRISTINE SULFATE [Suspect]
     Dosage: 2 MG
     Dates: start: 20060623

REACTIONS (1)
  - DEEP VEIN THROMBOSIS [None]
